FAERS Safety Report 6928752-7 (Version None)
Quarter: 2010Q3

REPORT INFORMATION
  Report Type: 
  Country: None (occurrence: None)
  Receive Date: 20100817
  Receipt Date: 20100812
  Transmission Date: 20110219
  Serious: Yes (Other)
  Sender: FDA-Public Use
  Company Number: US-ROXANE LABORATORIES, INC.-2010-DE-04407GD

PATIENT
  Age: 69 Year

DRUGS (3)
  1. ORAMORPH SR [Suspect]
  2. FENTANYL [Suspect]
  3. MIDAZOLAM HCL [Suspect]

REACTIONS (3)
  - BRADYPNOEA [None]
  - RESPIRATORY DEPRESSION [None]
  - SEDATION [None]
